FAERS Safety Report 16291605 (Version 1)
Quarter: 2019Q2

REPORT INFORMATION
  Report Type: Spontaneous
  Country: US (occurrence: US)
  Receive Date: 20190509
  Receipt Date: 20190509
  Transmission Date: 20190711
  Serious: No
  Sender: FDA-Public Use
  Company Number: US-ASTRAZENECA-2019SE43521

PATIENT
  Age: 49 Year
  Sex: Female
  Weight: 64.4 kg

DRUGS (1)
  1. FASENRA [Suspect]
     Active Substance: BENRALIZUMAB
     Indication: ASTHMA
     Route: 058
     Dates: start: 20180612

REACTIONS (2)
  - Headache [Recovered/Resolved]
  - Urticaria [Recovered/Resolved]
